FAERS Safety Report 18601990 (Version 3)
Quarter: 2021Q1

REPORT INFORMATION
  Report Type: Report from Study
  Country: IT (occurrence: IT)
  Receive Date: 20201210
  Receipt Date: 20210111
  Transmission Date: 20210419
  Serious: Yes (Hospitalization)
  Sender: FDA-Public Use
  Company Number: IT-B.I. PHARMACEUTICALS,INC./RIDGEFIELD-2020-BI-063675

PATIENT
  Age: 70 Year
  Sex: Female
  Weight: 0 kg

DRUGS (1)
  1. PRADAXA [Suspect]
     Active Substance: DABIGATRAN ETEXILATE MESYLATE
     Indication: PULMONARY EMBOLISM
     Route: 048
     Dates: end: 20200912

REACTIONS (5)
  - Cholelithiasis [Recovered/Resolved]
  - Faecaloma [Recovering/Resolving]
  - Abdominal pain [Recovered/Resolved]
  - Jaundice [Recovered/Resolved]
  - Vaginal haemorrhage [Recovered/Resolved]

NARRATIVE: CASE EVENT DATE: 20200912
